FAERS Safety Report 7507164-1 (Version None)
Quarter: 2011Q2

REPORT INFORMATION
  Report Type: 
  Country: None (occurrence: None)
  Receive Date: 20110526
  Receipt Date: 20081216
  Transmission Date: 20111010
  Serious: Yes (Death, Hospitalization, Other)
  Sender: FDA-Public Use
  Company Number: US-BAYER-2011-006910

PATIENT
  Age: 48 Year
  Sex: Female
  Weight: 55.782 kg

DRUGS (34)
  1. MIDAZOLAM HCL [Concomitant]
     Dosage: UNK
     Route: 042
     Dates: start: 20031121, end: 20031121
  2. ALBUMIN (HUMAN) [Concomitant]
     Dosage: 12.5 G, UNK
     Dates: start: 20031112, end: 20031112
  3. CALCIUM CHLORIDE [Concomitant]
     Dosage: 1 G, UNK
     Dates: start: 20031112, end: 20031112
  4. DOBUTAMINE HYDROCHLORIDE [Concomitant]
     Dosage: 3MCG/KG/MIN
     Route: 042
     Dates: start: 20031121, end: 20031121
  5. MANNITOL [Concomitant]
     Dosage: 25 G, UNK
     Dates: start: 20030325, end: 20030325
  6. LIDOCAINE [Concomitant]
     Dosage: 100 MG, UNK
     Dates: start: 20030325, end: 20030325
  7. VASOPRESSIN [Concomitant]
     Dosage: UNK
     Route: 042
     Dates: start: 20030227
  8. PROPYLTHIOURACIL [Concomitant]
     Dosage: UNK
     Dates: start: 20030227
  9. VASOPRESSIN [Concomitant]
     Dosage: 6 U, UNK
     Dates: start: 20031112, end: 20031112
  10. LASIX [Concomitant]
     Dosage: 3MCG/KG/MIN
     Route: 042
     Dates: start: 20031121
  11. TRASYLOL [Suspect]
     Indication: STERNOTOMY
     Dosage: 300 ML LOADING DOSE
     Route: 042
     Dates: start: 20031112, end: 20031112
  12. VITAMIN K TAB [Concomitant]
     Dosage: UNK
     Dates: start: 20030227
  13. LASIX [Concomitant]
     Dosage: 20MG ONCE DAILY
     Route: 048
  14. TRASYLOL [Suspect]
     Indication: CORONARY ARTERY BYPASS
     Dosage: 200 ML, UNK
     Route: 042
     Dates: start: 20030325, end: 20030325
  15. SODIUM BICARBONATE [Concomitant]
     Dosage: 50 MEQ, UNK
     Dates: start: 20030325, end: 20030325
  16. SODIUM BICARBONATE [Concomitant]
     Dosage: 50 MEQ, UNK
     Dates: start: 20031112, end: 20031112
  17. HEPARIN [Concomitant]
     Dosage: UNK
     Dates: start: 20030227
  18. HEPARIN [Concomitant]
     Dosage: UNK
     Route: 042
     Dates: start: 20030325
  19. NITROGLYCERIN [Concomitant]
     Dosage: UNK
     Route: 042
     Dates: start: 20030325
  20. MANNITOL [Concomitant]
     Dosage: UNK
     Dates: start: 20031112, end: 20031112
  21. LIDOCAINE [Concomitant]
     Dosage: 100 MG, UNK
     Dates: start: 20031112, end: 20031112
  22. MIDAZOLAM HCL [Concomitant]
     Dosage: 5 MG, UNK
     Dates: start: 20031112, end: 20031112
  23. LISINOPRIL [Concomitant]
     Dosage: 5MG ONCE DAILY
     Route: 048
  24. SOTALOL HCL [Concomitant]
     Dosage: 40MG TWICE DAILY
     Route: 048
  25. METOPROLOL TARTRATE [Concomitant]
     Dosage: 50MG ONCE DAILY
     Dates: start: 20030301
  26. VASOPRESSIN [Concomitant]
     Dosage: UNK
     Dates: start: 20031121
  27. MIDAZOLAM HCL [Concomitant]
     Dosage: UNK
     Route: 042
     Dates: start: 20030325
  28. DIGOXIN [Concomitant]
     Dosage: 0.125MG ONCE DAILY
  29. DOBUTAMINE HYDROCHLORIDE [Concomitant]
     Dosage: UNK
     Route: 042
     Dates: start: 20030325
  30. DOPAMINE HCL [Concomitant]
     Dosage: UNK
     Dates: start: 20030325
  31. PROTAMINE SULFATE [Concomitant]
     Dosage: UNK
     Dates: start: 20030325
  32. VANCOMYCIN [Concomitant]
     Dosage: UNK
     Route: 042
     Dates: start: 20030325
  33. TRASYLOL [Suspect]
     Indication: TRICUSPID VALVE REPAIR
     Dosage: 50ML/HR INFUSION
     Route: 042
     Dates: start: 20031112, end: 20031112
  34. ACETYLSALICYLIC ACID SRT [Concomitant]
     Dosage: 81 MG, UNK
     Route: 048
     Dates: start: 20030301

REACTIONS (10)
  - FEAR [None]
  - INJURY [None]
  - RENAL INJURY [None]
  - RENAL FAILURE [None]
  - STRESS [None]
  - PAIN [None]
  - ANXIETY [None]
  - RENAL IMPAIRMENT [None]
  - EMOTIONAL DISTRESS [None]
  - UNEVALUABLE EVENT [None]
